FAERS Safety Report 4489779-0 (Version None)
Quarter: 2004Q4

REPORT INFORMATION
  Report Type: 
  Country: None (occurrence: None)
  Receive Date: 20041026
  Receipt Date: 20041006
  Transmission Date: 20050328
  Serious: Yes (Other)
  Sender: FDA-Public Use
  Company Number: JP_041004804

PATIENT
  Age: 48 Year
  Sex: Male

DRUGS (2)
  1. ONCOVIN [Suspect]
     Indication: BRAIN NEOPLASM
     Dates: start: 19980101
  2. NIMUSTINE HYDROCHLORIDE [Concomitant]

REACTIONS (2)
  - MYELODYSPLASTIC SYNDROME [None]
  - PANCYTOPENIA [None]
